FAERS Safety Report 24049248 (Version 1)
Quarter: 2024Q3

REPORT INFORMATION
  Report Type: Report from Study
  Country: CA (occurrence: CA)
  Receive Date: 20240704
  Receipt Date: 20240704
  Transmission Date: 20241017
  Serious: Yes (Other)
  Sender: SANDOZ
  Company Number: CA-002147023-NVSC2022CA296119

PATIENT
  Sex: Male

DRUGS (1)
  1. ERELZI [Suspect]
     Active Substance: ETANERCEPT-SZZS
     Indication: Psoriatic arthropathy
     Dosage: 50MG SC QSEMAINE;WEEKLY
     Route: 058
     Dates: start: 20221108

REACTIONS (8)
  - Ankylosing spondylitis [Unknown]
  - Mental impairment [Unknown]
  - Multiple sclerosis [Unknown]
  - Fall [Unknown]
  - Gait disturbance [Unknown]
  - Condition aggravated [Unknown]
  - Arthritis [Unknown]
  - Drug ineffective [Unknown]
